FAERS Safety Report 9220773 (Version 6)
Quarter: 2020Q3

REPORT INFORMATION
  Report Type: Report from Study
  Country: CA (occurrence: CA)
  Receive Date: 20130409
  Receipt Date: 20150716
  Transmission Date: 20201105
  Serious: Yes (Hospitalization)
  Sender: FDA-Public Use
  Company Number: CA-JNJFOC-20130402857

PATIENT
  Age: 53 Year
  Sex: Female
  Weight: 117 kg

DRUGS (18)
  1. CALCIUM CARBONATE. [Concomitant]
     Active Substance: CALCIUM CARBONATE
     Indication: NUTRITIONAL SUPPLEMENTATION
     Route: 048
     Dates: start: 201211
  2. TEMAZEPAM. [Concomitant]
     Active Substance: TEMAZEPAM
     Indication: SLEEP DISORDER THERAPY
     Route: 048
     Dates: start: 201211
  3. PANTOPRAZOLE [Concomitant]
     Active Substance: PANTOPRAZOLE
     Indication: GASTRIC DISORDER
     Route: 048
     Dates: start: 201211
  4. CLINDAMYCIN. [Concomitant]
     Active Substance: CLINDAMYCIN
  5. ALPRAZOLAM. [Concomitant]
     Active Substance: ALPRAZOLAM
     Indication: ANXIETY
     Dates: start: 201111
  6. COLESTID [Concomitant]
     Active Substance: COLESTIPOL HYDROCHLORIDE
     Indication: DIARRHOEA
     Route: 048
     Dates: start: 201209
  7. VITAMIN A [Concomitant]
     Active Substance: VITAMIN A
     Indication: NUTRITIONAL SUPPLEMENTATION
     Route: 048
     Dates: start: 201002
  8. WELLBUTRIN XL [Concomitant]
     Active Substance: BUPROPION HYDROCHLORIDE
     Indication: DEPRESSION
     Route: 048
     Dates: start: 201203
  9. USTEKINUMAB [Suspect]
     Active Substance: USTEKINUMAB
     Indication: CROHN^S DISEASE
     Route: 058
     Dates: start: 20130228
  10. VITAMIN D NOS [Concomitant]
     Active Substance: VITAMIN D NOS
     Indication: NUTRITIONAL SUPPLEMENTATION
     Route: 030
     Dates: start: 201011
  11. CIPROFLOXACIN. [Concomitant]
     Active Substance: CIPROFLOXACIN
     Route: 048
     Dates: start: 20130222
  12. SALAGEN [Concomitant]
     Active Substance: PILOCARPINE HYDROCHLORIDE
     Indication: DRY MOUTH
     Route: 048
     Dates: start: 201106
  13. GRAVOL [Concomitant]
     Active Substance: DIMENHYDRINATE
     Indication: NAUSEA
     Route: 048
     Dates: start: 201211
  14. USTEKINUMAB [Suspect]
     Active Substance: USTEKINUMAB
     Route: 058
  15. VITAMIN D NOS [Concomitant]
     Active Substance: VITAMIN D NOS
     Indication: NUTRITIONAL SUPPLEMENTATION
     Route: 048
     Dates: start: 2010
  16. VITAMIN B12 [Concomitant]
     Active Substance: CYANOCOBALAMIN
     Indication: NUTRITIONAL SUPPLEMENTATION
     Route: 030
     Dates: start: 2010
  17. ZINC. [Concomitant]
     Active Substance: ZINC
     Indication: NUTRITIONAL SUPPLEMENTATION
     Route: 048
     Dates: start: 2012
  18. KETOROLAC [Concomitant]
     Active Substance: KETOROLAC TROMETHAMINE
     Indication: PAIN
     Route: 054
     Dates: start: 201212

REACTIONS (1)
  - Anal abscess [Recovered/Resolved]

NARRATIVE: CASE EVENT DATE: 20130320
